FAERS Safety Report 8819827 (Version 1)
Quarter: 2012Q4

REPORT INFORMATION
  Report Type: 
  Country: US (occurrence: US)
  Receive Date: 20121001
  Receipt Date: 20121001
  Transmission Date: 20130627
  Serious: No
  Sender: FDA-Public Use
  Company Number: US-ASTRAZENECA-2012SE72416

PATIENT
  Age: 41 Year
  Sex: Female
  Weight: 73.9 kg

DRUGS (2)
  1. SEROQUEL XR [Suspect]
     Indication: BIPOLAR DISORDER
     Route: 048
     Dates: start: 201204
  2. LAMICTAL [Concomitant]

REACTIONS (2)
  - Weight increased [Unknown]
  - Drug dose omission [Unknown]
